FAERS Safety Report 9422167 (Version 1)
Quarter: 2013Q3

REPORT INFORMATION
  Report Type: Spontaneous
  Country: US (occurrence: US)
  Receive Date: 20130726
  Receipt Date: 20130726
  Transmission Date: 20140515
  Serious: Yes (Other)
  Sender: FDA-Public Use
  Company Number: US-PURDUE-USA-2013-0104834

PATIENT
  Sex: Male

DRUGS (2)
  1. DILAUDID INJECTION [Suspect]
     Indication: PAIN
     Dosage: 2 MG, UNK
     Route: 042
     Dates: start: 2010
  2. TORADOL [Concomitant]
     Indication: PRODUCT USED FOR UNKNOWN INDICATION
     Route: 065

REACTIONS (7)
  - Nephrolithiasis [Unknown]
  - Respiratory rate decreased [Recovered/Resolved]
  - Pollakiuria [Unknown]
  - Nausea [Unknown]
  - Vomiting [Recovered/Resolved]
  - Asthenia [Recovered/Resolved]
  - Somnolence [Not Recovered/Not Resolved]
